FAERS Safety Report 8554965-7 (Version None)
Quarter: 2012Q3

REPORT INFORMATION
  Report Type: 
  Country: None (occurrence: None)
  Receive Date: 20120731
  Receipt Date: 20120509
  Transmission Date: 20120928
  Serious: Yes (Hospitalization, Disabling)
  Sender: FDA-Public Use
  Company Number: US-009507513-2011SP051267

PATIENT

DRUGS (2)
  1. BENADRYL [Suspect]
     Indication: PRODUCT USED FOR UNKNOWN INDICATION
  2. NUVARING [Suspect]
     Indication: CONTRACEPTION
     Dosage: UNK UNK, QM
     Route: 067
     Dates: start: 20070101, end: 20091101

REACTIONS (17)
  - DEEP VEIN THROMBOSIS [None]
  - DRUG HYPERSENSITIVITY [None]
  - ASTHMA [None]
  - HYPERCOAGULATION [None]
  - ABDOMINAL PAIN UPPER [None]
  - OVARIAN CYST [None]
  - ARTHRALGIA [None]
  - VENOUS INSUFFICIENCY [None]
  - PAIN IN EXTREMITY [None]
  - FATIGUE [None]
  - DYSMENORRHOEA [None]
  - HEADACHE [None]
  - URTICARIA [None]
  - CONTUSION [None]
  - VARICOSE VEIN [None]
  - PAIN [None]
  - PAPILLOMA VIRAL INFECTION [None]
